FAERS Safety Report 16629549 (Version 1)
Quarter: 2019Q3

REPORT INFORMATION
  Report Type: Spontaneous
  Country: US (occurrence: US)
  Receive Date: 20190725
  Receipt Date: 20190725
  Transmission Date: 20191004
  Serious: No
  Sender: FDA-Public Use
  Company Number: US-TEVA-2019-US-1077871

PATIENT
  Sex: Female

DRUGS (7)
  1. AUSTEDO [Suspect]
     Active Substance: DEUTETRABENAZINE
     Indication: TARDIVE DYSKINESIA
     Dosage: 6 MILLIGRAM DAILY; HALF TABLET TWICE PER DAY
     Route: 065
     Dates: start: 20190306
  2. ALLOPURINOL. [Concomitant]
     Active Substance: ALLOPURINOL
  3. APAP 500MG [Concomitant]
  4. BELTUCA [Concomitant]
  5. VIT D [Concomitant]
     Active Substance: VITAMIN D NOS
  6. ASA 81MG [Concomitant]
     Active Substance: ASPIRIN
  7. PERCOCET [Concomitant]
     Active Substance: ACETAMINOPHEN\OXYCODONE HYDROCHLORIDE

REACTIONS (3)
  - Off label use [Unknown]
  - Wrong technique in product usage process [Unknown]
  - Drug tolerance decreased [Unknown]
